FAERS Safety Report 11177981 (Version 2)
Quarter: 2015Q2

REPORT INFORMATION
  Report Type: Spontaneous
  Country: US (occurrence: US)
  Receive Date: 20150610
  Receipt Date: 20150610
  Transmission Date: 20150821
  Serious: Yes (Other)
  Sender: FDA-Public Use
  Company Number: US-ELI_LILLY_AND_COMPANY-US201506001679

PATIENT
  Sex: Male

DRUGS (1)
  1. HUMALOG [Suspect]
     Active Substance: INSULIN LISPRO
     Indication: DIABETES MELLITUS
     Dosage: UNK
     Route: 065
     Dates: start: 2011

REACTIONS (9)
  - Apathy [Unknown]
  - Blindness [Not Recovered/Not Resolved]
  - Stubbornness [Unknown]
  - Overweight [Unknown]
  - Mobility decreased [Unknown]
  - Limb injury [Not Recovered/Not Resolved]
  - Emotional distress [Unknown]
  - Diabetic complication [Not Recovered/Not Resolved]
  - Road traffic accident [Unknown]

NARRATIVE: CASE EVENT DATE: 2011
